FAERS Safety Report 7717618-0 (Version None)
Quarter: 2011Q3

REPORT INFORMATION
  Report Type: 
  Country: None (occurrence: None)
  Receive Date: 20110830
  Receipt Date: 20110830
  Transmission Date: 20111222
  Serious: No
  Sender: FDA-Public Use
  Company Number: None

PATIENT
  Sex: Male
  Weight: 79.378 kg

DRUGS (1)
  1. CEFADROXIL [Suspect]
     Indication: ASPIRATION JOINT
     Dosage: ONE CAPSULE
     Route: 048
     Dates: start: 20110826, end: 20110828

REACTIONS (3)
  - ARTHRALGIA [None]
  - ARTHRITIS [None]
  - MOVEMENT DISORDER [None]
